FAERS Safety Report 25676870 (Version 1)
Quarter: 2025Q3

REPORT INFORMATION
  Report Type: Spontaneous
  Country: US (occurrence: US)
  Receive Date: 20250813
  Receipt Date: 20250813
  Transmission Date: 20251021
  Serious: No
  Sender: JOURNEY MEDICAL CORPORATION
  Company Number: US-JOURNEY MEDICAL CORPORATION-2024JNY00216

PATIENT
  Age: 55 Year
  Sex: Female
  Weight: 72.575 kg

DRUGS (1)
  1. QBREXZA [Suspect]
     Active Substance: GLYCOPYRRONIUM TOSYLATE
     Indication: Hyperhidrosis
     Dosage: ONCE DAILY TOPICALLY TO ARMPITS, SCALP ON FOREHEAD, BACK OF NECK (NOWHERE NEAR THE EYES)
     Route: 061
     Dates: start: 202408, end: 20240912

REACTIONS (1)
  - Anisocoria [Recovering/Resolving]

NARRATIVE: CASE EVENT DATE: 20240911
